FAERS Safety Report 4600066-X (Version None)
Quarter: 2005Q1

REPORT INFORMATION
  Report Type: 
  Country: None (occurrence: None)
  Receive Date: 20050307
  Receipt Date: 20050223
  Transmission Date: 20050727
  Serious: Yes (Death, Hospitalization)
  Sender: FDA-Public Use
  Company Number: FR-BRISTOL-MYERS SQUIBB COMPANY-12877262

PATIENT
  Age: 55 Year
  Sex: Male

DRUGS (9)
  1. FUNGIZONE [Suspect]
     Route: 042
     Dates: start: 20050104, end: 20050114
  2. GENTAMICIN [Suspect]
     Indication: ENDOCARDITIS BACTERIAL
     Dates: start: 20041222, end: 20050114
  3. FOSCAVIR [Suspect]
     Indication: CYTOMEGALOVIRUS VIRAEMIA
     Dates: start: 20041230, end: 20050114
  4. CYMEVAN [Suspect]
     Indication: CYTOMEGALOVIRUS VIRAEMIA
     Dates: start: 20041214, end: 20050114
  5. VFEND [Suspect]
     Indication: FUNGUS SEROLOGY TEST POSITIVE
     Dates: start: 20041230, end: 20050104
  6. AMOXICILLIN [Suspect]
     Indication: ENDOCARDITIS BACTERIAL
     Dates: start: 20041222, end: 20050114
  7. BACTRIM [Concomitant]
     Dates: start: 20041214, end: 20041230
  8. CORTANCYL [Concomitant]
     Dates: start: 20041214, end: 20041230
  9. EUPANTOL [Concomitant]
     Dates: start: 20041214

REACTIONS (4)
  - CYTOMEGALOVIRUS INFECTION [None]
  - FEBRILE BONE MARROW APLASIA [None]
  - MULTI-ORGAN FAILURE [None]
  - TOXIC EPIDERMAL NECROLYSIS [None]
